FAERS Safety Report 12548380 (Version 1)
Quarter: 2016Q3

REPORT INFORMATION
  Report Type: Spontaneous
  Country: GB (occurrence: GB)
  Receive Date: 20160712
  Receipt Date: 20160712
  Transmission Date: 20161109
  Serious: Yes (Other)
  Sender: FDA-Public Use
  Company Number: GB-AUROBINDO-AUR-APL-2016-08593

PATIENT
  Sex: Female

DRUGS (17)
  1. DOSULEPIN HYDROCHLORIDE [Concomitant]
     Active Substance: DOTHIEPIN HYDROCHLORIDE
     Indication: PRODUCT USED FOR UNKNOWN INDICATION
     Dosage: UNK
     Route: 065
     Dates: end: 200604
  2. NIQUITIN                           /01033301/ [Concomitant]
     Indication: EX-TOBACCO USER
     Dosage: UNK
     Route: 065
     Dates: start: 20050124, end: 200502
  3. ZOPICLONE [Concomitant]
     Active Substance: ZOPICLONE
     Indication: PRODUCT USED FOR UNKNOWN INDICATION
     Dosage: UNK
     Route: 065
     Dates: start: 1996, end: 200508
  4. PAROXETINE TABLETS 20 MG [Suspect]
     Active Substance: PAROXETINE HYDROCHLORIDE
     Dosage: 20 MG, QD
     Route: 048
     Dates: start: 20020118, end: 20030626
  5. LOSARTAN. [Concomitant]
     Active Substance: LOSARTAN
     Indication: PRODUCT USED FOR UNKNOWN INDICATION
     Dosage: UNK
     Route: 065
     Dates: end: 200508
  6. DOMPERIDONE [Concomitant]
     Active Substance: DOMPERIDONE
     Indication: PRODUCT USED FOR UNKNOWN INDICATION
     Dosage: UNK
     Route: 065
  7. STELAZINE [Concomitant]
     Active Substance: TRIFLUOPERAZINE HYDROCHLORIDE
     Indication: PRODUCT USED FOR UNKNOWN INDICATION
     Dosage: UNK
     Route: 065
     Dates: start: 1994
  8. PAROXETINE HYDROCHLORIDE. [Suspect]
     Active Substance: PAROXETINE HYDROCHLORIDE
     Indication: DEPRESSION
     Dosage: 2 ML, UNK
     Route: 048
  9. PAXIL [Suspect]
     Active Substance: PAROXETINE HYDROCHLORIDE
     Indication: DEPRESSION
     Dosage: 20 MG, BID
     Route: 048
     Dates: start: 20010501
  10. BUSPIRONE [Concomitant]
     Active Substance: BUSPIRONE HYDROCHLORIDE
     Indication: PRODUCT USED FOR UNKNOWN INDICATION
     Dosage: UNK
     Route: 065
     Dates: start: 20050210, end: 200505
  11. PAROXETINE TABLETS 20 MG [Suspect]
     Active Substance: PAROXETINE HYDROCHLORIDE
     Indication: ANXIETY
     Dosage: UNK
     Route: 065
     Dates: start: 20010417
  12. PAROXETINE TABLETS 20 MG [Suspect]
     Active Substance: PAROXETINE HYDROCHLORIDE
     Dosage: 40 MG, QD
     Route: 048
     Dates: start: 20010709
  13. EFFEXOR [Concomitant]
     Active Substance: VENLAFAXINE HYDROCHLORIDE
     Indication: PRODUCT USED FOR UNKNOWN INDICATION
     Dosage: UNK
     Route: 065
     Dates: start: 20050401
  14. PAROXETINE HYDROCHLORIDE. [Suspect]
     Active Substance: PAROXETINE HYDROCHLORIDE
     Indication: ANXIETY
     Dosage: UNK
  15. PAXIL [Suspect]
     Active Substance: PAROXETINE HYDROCHLORIDE
     Indication: ANXIETY
     Dosage: 30 MG, QD
     Route: 048
     Dates: start: 20020115
  16. DIAZEPAM. [Concomitant]
     Active Substance: DIAZEPAM
     Indication: PRODUCT USED FOR UNKNOWN INDICATION
     Dosage: 2 MG, TWO TIMES A DAY
     Route: 065
     Dates: start: 19900301, end: 20051219
  17. PROPRANOLOL [Concomitant]
     Active Substance: PROPRANOLOL\PROPRANOLOL HYDROCHLORIDE
     Indication: PRODUCT USED FOR UNKNOWN INDICATION
     Dosage: 10 MG, FOUR TIMES/DAY
     Route: 065
     Dates: start: 1990

REACTIONS (21)
  - Suicidal ideation [Unknown]
  - Sleep disorder [Unknown]
  - Lethargy [Unknown]
  - Withdrawal syndrome [Unknown]
  - Apathy [Unknown]
  - Communication disorder [Unknown]
  - Nightmare [Unknown]
  - Weight decreased [Unknown]
  - Tremor [Unknown]
  - Dyskinesia [Unknown]
  - Paraesthesia [Unknown]
  - Dyspnoea [Unknown]
  - Decreased appetite [Unknown]
  - Fatigue [Unknown]
  - Depressed mood [Unknown]
  - Anxiety [Unknown]
  - Chills [Unknown]
  - Abnormal dreams [Unknown]
  - Depression [Unknown]
  - Restlessness [Unknown]
  - Nausea [Unknown]

NARRATIVE: CASE EVENT DATE: 20010517
